FAERS Safety Report 8317665-4 (Version None)
Quarter: 2012Q2

REPORT INFORMATION
  Report Type: 
  Country: None (occurrence: None)
  Receive Date: 20120427
  Receipt Date: 20120425
  Transmission Date: 20120825
  Serious: Yes (Hospitalization)
  Sender: FDA-Public Use
  Company Number: US-BRISTOL-MYERS SQUIBB COMPANY-16547218

PATIENT
  Age: 39 Year
  Sex: Female
  Weight: 54 kg

DRUGS (1)
  1. IXABEPILONE [Suspect]
     Indication: CERVIX CARCINOMA
     Dosage: LAST DOSE ON 4APR12 NO OF COURSES: 2
     Route: 042
     Dates: start: 20120312

REACTIONS (1)
  - COLONIC OBSTRUCTION [None]
